FAERS Safety Report 17906958 (Version 16)
Quarter: 2024Q1

REPORT INFORMATION
  Report Type: Spontaneous
  Country: US (occurrence: US)
  Receive Date: 20200617
  Receipt Date: 20240314
  Transmission Date: 20240410
  Serious: Yes (Other)
  Sender: FDA-Public Use
  Company Number: US-PFIZER INC-2020233493

PATIENT
  Age: 66 Year
  Sex: Female

DRUGS (3)
  1. XELJANZ [Suspect]
     Active Substance: TOFACITINIB CITRATE
     Indication: Rheumatoid arthritis
     Dosage: 5 MG, 2X/DAY (XELJANZ 5 MG PO BID)
     Route: 048
     Dates: start: 2016
  2. XELJANZ [Suspect]
     Active Substance: TOFACITINIB CITRATE
     Dosage: 5 MG, DAILY (XELJANZ 5 MG PO QD)
     Route: 048
  3. PROLIA [Concomitant]
     Active Substance: DENOSUMAB
     Indication: Bone disorder
     Dosage: UNK, (EVERY SIX MONTHS)

REACTIONS (15)
  - Uterine cancer [Unknown]
  - Pelvic fracture [Unknown]
  - Back pain [Unknown]
  - Neck pain [Unknown]
  - Fall [Unknown]
  - Fracture [Unknown]
  - Off label use [Unknown]
  - Product prescribing issue [Unknown]
  - Condition aggravated [Unknown]
  - Malaise [Unknown]
  - Muscle spasms [Unknown]
  - Pain [Unknown]
  - Anxiety [Unknown]
  - Sleep disorder [Unknown]
  - Vitamin B1 decreased [Unknown]

NARRATIVE: CASE EVENT DATE: 20210802
